FAERS Safety Report 23502394 (Version 1)
Quarter: 2024Q1

REPORT INFORMATION
  Report Type: Spontaneous
  Country: US (occurrence: US)
  Receive Date: 20240208
  Receipt Date: 20240208
  Transmission Date: 20240409
  Serious: No
  Sender: FDA-Public Use
  Company Number: US-INTRA-CELLULAR THERAPIES, INC.-2022ICT01825

PATIENT
  Sex: Female
  Weight: 72.562 kg

DRUGS (2)
  1. CAPLYTA [Suspect]
     Active Substance: LUMATEPERONE
     Indication: Bipolar disorder
     Dosage: 42 MG, ONCE
     Route: 048
  2. CAPLYTA [Suspect]
     Active Substance: LUMATEPERONE
     Indication: Depression

REACTIONS (6)
  - Feeling cold [Unknown]
  - Burning sensation [Unknown]
  - Decreased appetite [Unknown]
  - Vision blurred [Unknown]
  - Vomiting [Unknown]
  - Nausea [Unknown]
